FAERS Safety Report 24675738 (Version 1)
Quarter: 2024Q4

REPORT INFORMATION
  Report Type: Spontaneous
  Country: IT (occurrence: IT)
  Receive Date: 20241128
  Receipt Date: 20241128
  Transmission Date: 20250115
  Serious: Yes (Hospitalization)
  Sender: PFIZER
  Company Number: None

PATIENT
  Age: 64 Year
  Sex: Female

DRUGS (1)
  1. RITUXIMAB [Suspect]
     Active Substance: RITUXIMAB
     Indication: Progressive relapsing multiple sclerosis
     Dosage: 1000 MG 1 VIAL EVERY 2 WEEKS, THEN 1 VIAL EVERY SIX MONTHS INTRAVENOUS
     Route: 042
     Dates: start: 20240408, end: 20240422

REACTIONS (2)
  - Colon cancer [Recovered/Resolved with Sequelae]
  - Off label use [Unknown]

NARRATIVE: CASE EVENT DATE: 20240601
